FAERS Safety Report 4515036-X (Version None)
Quarter: 2004Q4

REPORT INFORMATION
  Report Type: 
  Country: None (occurrence: None)
  Receive Date: 20041129
  Receipt Date: 20041129
  Transmission Date: 20050328
  Serious: Yes (Hospitalization)
  Sender: FDA-Public Use
  Company Number: None

PATIENT
  Age: 75 Year
  Sex: Male
  Weight: 81 kg

DRUGS (12)
  1. ZELNORM [Suspect]
     Indication: CONSTIPATION
     Dosage: 6MG P.O. BID
     Route: 048
  2. ATENOLOL [Concomitant]
  3. STOOL SOFTENER (OTC) [Concomitant]
  4. ECOTRIN [Concomitant]
  5. PLAVIX [Concomitant]
  6. TRICOR [Concomitant]
  7. FUROSEMIDE [Concomitant]
  8. SUCRALFATE [Concomitant]
  9. NEXIUM [Concomitant]
  10. CENTRUM [Concomitant]
  11. CALCIUM [Concomitant]
  12. LEVAQUIN [Concomitant]

REACTIONS (8)
  - ABDOMINAL DISTENSION [None]
  - ABDOMINAL PAIN UPPER [None]
  - CHEST PAIN [None]
  - GASTROINTESTINAL DISORDER [None]
  - ILEUS [None]
  - NAUSEA [None]
  - PAIN [None]
  - VOMITING [None]
